FAERS Safety Report 26208061 (Version 1)
Quarter: 2025Q4

REPORT INFORMATION
  Report Type: Spontaneous
  Country: TR (occurrence: TR)
  Receive Date: 20251229
  Receipt Date: 20251229
  Transmission Date: 20260117
  Serious: Yes (Other)
  Sender: AMGEN
  Company Number: TR-AMGEN-TURSP2025254087

PATIENT

DRUGS (2)
  1. ADALIMUMAB [Suspect]
     Active Substance: ADALIMUMAB
     Indication: Uveitis
     Dosage: 40 MILLIGRAM (LOADING DOSE)
     Route: 065
  2. METHOTREXATE [Suspect]
     Active Substance: METHOTREXATE
     Indication: Uveitis
     Dosage: UNK UNK, QWK/ 10-15 MG/KG
     Route: 058

REACTIONS (8)
  - Peritoneal tuberculosis [Unknown]
  - Glaucoma [Unknown]
  - Cataract [Unknown]
  - Iris adhesions [Unknown]
  - Keratopathy [Unknown]
  - Intraocular pressure test abnormal [Unknown]
  - Therapy non-responder [Unknown]
  - Liver function test increased [Unknown]
